FAERS Safety Report 6104403-9 (Version None)
Quarter: 2009Q1

REPORT INFORMATION
  Report Type: 
  Country: None (occurrence: None)
  Receive Date: 20090305
  Receipt Date: 20090227
  Transmission Date: 20090719
  Serious: Yes (Death)
  Sender: FDA-Public Use
  Company Number: US-JNJFOC-20090206741

PATIENT
  Sex: Female

DRUGS (3)
  1. TYLENOL [Suspect]
  2. TYLENOL [Suspect]
     Indication: NASOPHARYNGITIS
  3. ACIPHEX [Suspect]
     Indication: GASTROOESOPHAGEAL REFLUX DISEASE
     Route: 048

REACTIONS (1)
  - DEATH [None]
